FAERS Safety Report 8801673 (Version 1)
Quarter: 2012Q4

REPORT INFORMATION
  Report Type: 
  Country: ZA (occurrence: ZA)
  Receive Date: 20120921
  Receipt Date: 20120921
  Transmission Date: 20130627
  Serious: Yes (Hospitalization)
  Sender: FDA-Public Use
  Company Number: ZA-ELI_LILLY_AND_COMPANY-ZA201209004001

PATIENT
  Sex: Female

DRUGS (4)
  1. HUMALOG 50% LISPRO, 50% NPL [Suspect]
     Indication: DIABETES MELLITUS
     Dosage: 20 IU, each morning
     Route: 058
  2. HUMALOG 50% LISPRO, 50% NPL [Suspect]
     Dosage: 22 IU, each evening
     Route: 058
  3. HUMALOG 50% LISPRO, 50% NPL [Suspect]
     Dosage: 26 IU, each morning
     Dates: start: 201208
  4. HUMALOG 50% LISPRO, 50% NPL [Suspect]
     Dosage: 28 IU, each evening
     Dates: start: 201208

REACTIONS (2)
  - Pneumonia [Unknown]
  - Blood glucose abnormal [Unknown]
